FAERS Safety Report 19984838 (Version 2)
Quarter: 2021Q4

REPORT INFORMATION
  Report Type: Spontaneous
  Country: US (occurrence: US)
  Receive Date: 20211022
  Receipt Date: 20211102
  Transmission Date: 20220303
  Serious: Yes (Hospitalization, Other)
  Sender: FDA-Public Use
  Company Number: US-PFIZER INC-202101401431

PATIENT
  Age: 62 Year
  Sex: Male

DRUGS (2)
  1. METHYLPREDNISOLONE SODIUM SUCCINATE [Suspect]
     Active Substance: METHYLPREDNISOLONE SODIUM SUCCINATE
     Indication: Pulmonary fibrosis
     Dosage: 125 MG, 4X/DAY (EVERY SIX HOURLY)
     Route: 042
  2. CEFTAZIDIME [Concomitant]
     Active Substance: CEFTAZIDIME
     Dosage: UNK

REACTIONS (5)
  - Pneumonia cryptococcal [Recovering/Resolving]
  - Pneumocystis jirovecii pneumonia [Recovering/Resolving]
  - Atrial fibrillation [Recovering/Resolving]
  - Intensive care unit acquired weakness [Recovering/Resolving]
  - Atrial flutter [Recovering/Resolving]
